FAERS Safety Report 10884302 (Version 1)
Quarter: 2015Q1

REPORT INFORMATION
  Report Type: Spontaneous
  Country: AU (occurrence: AU)
  Receive Date: 20150304
  Receipt Date: 20150304
  Transmission Date: 20150721
  Serious: Yes (Other)
  Sender: FDA-Public Use
  Company Number: AU-AUROBINDO-AUR-APL-2015-01689

PATIENT
  Sex: Male
  Weight: 3.61 kg

DRUGS (6)
  1. LAMOTRIGINE. [Suspect]
     Active Substance: LAMOTRIGINE
     Indication: BIPOLAR DISORDER
     Dosage: 400 MG, DAILY
     Route: 064
  2. LAMOTRIGINE. [Suspect]
     Active Substance: LAMOTRIGINE
     Indication: HYPOTHYROIDISM
     Dosage: 500 MG, DAILY
     Route: 065
  3. QUETIAPINE [Suspect]
     Active Substance: QUETIAPINE
     Indication: BIPOLAR DISORDER
     Dosage: 600 MG, DAILY
     Route: 064
  4. THYROXINE [Suspect]
     Active Substance: LEVOTHYROXINE
     Indication: BIPOLAR DISORDER
     Dosage: 100 ?G, DAILY
     Route: 064
  5. QUETIAPINE [Suspect]
     Active Substance: QUETIAPINE
     Indication: HYPOTHYROIDISM
  6. THYROXINE [Suspect]
     Active Substance: LEVOTHYROXINE
     Indication: HYPOTHYROIDISM

REACTIONS (11)
  - Drug withdrawal syndrome neonatal [Recovered/Resolved]
  - Foetal heart rate abnormal [Recovered/Resolved]
  - Foetal exposure during pregnancy [Unknown]
  - Neonatal behavioural syndrome [Unknown]
  - Shoulder dystocia [Recovered/Resolved]
  - Breath sounds absent [Recovered/Resolved]
  - Feeding disorder neonatal [Unknown]
  - Respiratory disorder neonatal [Recovered/Resolved]
  - Hypoxic-ischaemic encephalopathy [Recovered/Resolved]
  - Subgaleal haematoma [Recovered/Resolved]
  - Irritability [Recovered/Resolved]
